FAERS Safety Report 14044998 (Version 1)
Quarter: 2017Q4

REPORT INFORMATION
  Report Type: Spontaneous
  Country: US (occurrence: US)
  Receive Date: 20171005
  Receipt Date: 20171005
  Transmission Date: 20180321
  Serious: No
  Sender: FDA-Public Use
  Company Number: US-009507513-1709USA010401

PATIENT
  Sex: Male

DRUGS (1)
  1. ZEPATIER [Suspect]
     Active Substance: ELBASVIR\GRAZOPREVIR
     Indication: HEPATITIS C
     Dosage: 1 TABLET (50-100 MG), EVERY DAY
     Route: 048
     Dates: start: 201708

REACTIONS (2)
  - Psychomotor hyperactivity [Unknown]
  - Spider vein [Unknown]

NARRATIVE: CASE EVENT DATE: 2017
